FAERS Safety Report 4389235-4 (Version None)
Quarter: 2004Q2

REPORT INFORMATION
  Report Type: 
  Country: None (occurrence: None)
  Receive Date: 20040630
  Receipt Date: 20040617
  Transmission Date: 20050107
  Serious: Yes (Hospitalization)
  Sender: FDA-Public Use
  Company Number: 2004220063FR

PATIENT
  Age: 70 Year
  Sex: Male

DRUGS (9)
  1. ALDACTONE [Suspect]
     Dosage: 2 DF, DAILY, ORAL
     Route: 048
     Dates: end: 20040314
  2. RAMIPRIL [Suspect]
     Dosage: 1 DF, DAILY , ORAL
     Route: 048
     Dates: end: 20040314
  3. BUMETANIDE [Suspect]
     Dosage: 1 DF, DAILY, ORAL
     Route: 048
  4. AMARYL [Concomitant]
  5. METFORMIN [Concomitant]
  6. BISOPROLOL FUMARATE [Concomitant]
  7. FUMAFER [Concomitant]
  8. DURAGESIC [Concomitant]
  9. STILNOX (ZOLPIDEM) [Concomitant]

REACTIONS (3)
  - DEHYDRATION [None]
  - HYPERKALAEMIA [None]
  - RENAL FAILURE ACUTE [None]
